FAERS Safety Report 6831761-X (Version None)
Quarter: 2010Q3

REPORT INFORMATION
  Report Type: 
  Country: None (occurrence: None)
  Receive Date: 20100712
  Receipt Date: 20100702
  Transmission Date: 20110219
  Serious: Yes (Death, Life-Threatening, Other)
  Sender: FDA-Public Use
  Company Number: JP-MPIJNJ-2010-02628

PATIENT

DRUGS (8)
  1. VELCADE [Suspect]
     Indication: MULTIPLE MYELOMA
     Dosage: 1.3 MG/M2, UNK
     Route: 042
     Dates: start: 20100426, end: 20100506
  2. PREDNISOLONE [Concomitant]
     Indication: MULTIPLE MYELOMA
  3. LOXONIN                            /00890702/ [Concomitant]
     Route: 048
  4. METHYCOBAL                         /00324901/ [Concomitant]
     Route: 048
  5. MAGNESIUM OXIDE [Concomitant]
     Route: 048
  6. CONIEL [Concomitant]
     Route: 048
  7. PARIET [Concomitant]
     Route: 048
  8. ITRIZOLE [Concomitant]
     Dosage: UNK
     Route: 048
     Dates: end: 20100504

REACTIONS (9)
  - ALANINE AMINOTRANSFERASE INCREASED [None]
  - ASPARTATE AMINOTRANSFERASE INCREASED [None]
  - BLOOD ALKALINE PHOSPHATASE INCREASED [None]
  - BLOOD LACTATE DEHYDROGENASE INCREASED [None]
  - BONE PAIN [None]
  - CARDIO-RESPIRATORY ARREST [None]
  - DEPRESSED LEVEL OF CONSCIOUSNESS [None]
  - MYALGIA [None]
  - PLATELET COUNT DECREASED [None]
